FAERS Safety Report 4944493-X (Version None)
Quarter: 2006Q1

REPORT INFORMATION
  Report Type: 
  Country: None (occurrence: None)
  Receive Date: 20060315
  Receipt Date: 20060309
  Transmission Date: 20060701
  Serious: Yes (Death, Hospitalization)
  Sender: FDA-Public Use
  Company Number: PHBS2006IN03588

PATIENT
  Age: 16 Year
  Sex: Male

DRUGS (1)
  1. CARBAMAZEPINE [Suspect]
     Indication: CONVULSION
     Route: 065

REACTIONS (8)
  - ACUTE RESPIRATORY DISTRESS SYNDROME [None]
  - CARDIAC ARREST [None]
  - HYPERSENSITIVITY [None]
  - PYREXIA [None]
  - RESPIRATORY TRACT INFECTION [None]
  - SKIN EXFOLIATION [None]
  - SKIN NECROSIS [None]
  - STEVENS-JOHNSON SYNDROME [None]
